FAERS Safety Report 8206830-2 (Version None)
Quarter: 2012Q1

REPORT INFORMATION
  Report Type: 
  Country: None (occurrence: None)
  Receive Date: 20120314
  Receipt Date: 20120306
  Transmission Date: 20120608
  Serious: Yes (Hospitalization)
  Sender: FDA-Public Use
  Company Number: FR-TEVA-327133ISR

PATIENT
  Sex: Female

DRUGS (5)
  1. ZOLPIDEM [Concomitant]
  2. PAROXETINE [Concomitant]
  3. TIANEPTINE [Concomitant]
  4. AZILECT [Suspect]
     Indication: PARKINSON'S DISEASE
     Dates: start: 20110101
  5. PRAMIPEXOLE DIHYDROCHLORIDE [Concomitant]

REACTIONS (1)
  - NEUTROPENIA [None]
